FAERS Safety Report 8897159 (Version 1)
Quarter: 2012Q4

REPORT INFORMATION
  Report Type: 
  Country: US (occurrence: US)
  Receive Date: 20121108
  Receipt Date: 20121108
  Transmission Date: 20130627
  Serious: No
  Sender: FDA-Public Use
  Company Number: US-AMGEN-USASP2012011933

PATIENT
  Age: 52 Year
  Sex: Female

DRUGS (7)
  1. ENBREL [Suspect]
     Indication: PRODUCT USED FOR UNKNOWN INDICATION
     Dosage: 50 mg, qwk
  2. CYMBALTA [Concomitant]
     Dosage: 30 mg, UNK
  3. LYRICA [Concomitant]
     Dosage: 200 mg, UNK
  4. ISONIAZID [Concomitant]
     Dosage: 100 mg, UNK
  5. POTASSIUM [Concomitant]
     Dosage: 75 mg, UNK
  6. METHOTREXATE [Concomitant]
     Dosage: 250 mg, UNK
  7. FOLIC ACID [Concomitant]
     Dosage: 20 mg, UNK

REACTIONS (1)
  - Influenza like illness [Unknown]
